FAERS Safety Report 17556272 (Version 1)
Quarter: 2020Q1

REPORT INFORMATION
  Report Type: Report from Study
  Country: US (occurrence: US)
  Receive Date: 20200318
  Receipt Date: 20200318
  Transmission Date: 20200409
  Serious: Yes (Hospitalization)
  Sender: FDA-Public Use
  Company Number: US-AMGEN-USACT2020034843

PATIENT
  Age: 54 Year
  Sex: Female
  Weight: 77.1 kg

DRUGS (5)
  1. ROMIPLOSTIM [Suspect]
     Active Substance: ROMIPLOSTIM
     Indication: THROMBOCYTOPENIA
     Dosage: 670 MICROGRAM, QWK
     Route: 058
     Dates: start: 20170921
  2. ROMIPLOSTIM [Suspect]
     Active Substance: ROMIPLOSTIM
     Dosage: 670 MICROGRAM, QWK
     Route: 058
     Dates: start: 20200308
  3. LOVENOX [Concomitant]
     Active Substance: ENOXAPARIN SODIUM
     Dosage: 60 MILLIGRAM, BID
  4. LOVENOX [Concomitant]
     Active Substance: ENOXAPARIN SODIUM
     Dosage: 60 MILLIGRAM
     Dates: start: 20200310
  5. LOVENOX [Concomitant]
     Active Substance: ENOXAPARIN SODIUM
     Dosage: 40 UNK, QD
     Dates: start: 20200305

REACTIONS (7)
  - Troponin I increased [Unknown]
  - International normalised ratio increased [Unknown]
  - Blood fibrinogen decreased [Unknown]
  - Anxiety [Unknown]
  - Blood creatinine increased [Unknown]
  - Sinus tachycardia [Unknown]
  - Cerebrovascular accident [Unknown]

NARRATIVE: CASE EVENT DATE: 20200221
